FAERS Safety Report 6494964-2 (Version None)
Quarter: 2009Q4

REPORT INFORMATION
  Report Type: 
  Country: None (occurrence: None)
  Receive Date: 20091214
  Receipt Date: 20090514
  Transmission Date: 20100525
  Serious: Yes (Other)
  Sender: FDA-Public Use
  Company Number: US-BRISTOL-MYERS SQUIBB COMPANY-14587687

PATIENT
  Age: 28 Year
  Sex: Female
  Weight: 52 kg

DRUGS (1)
  1. ABILIFY [Suspect]
     Indication: DEPRESSION
     Dosage: TOOK 1 OR 2 PILLS

REACTIONS (6)
  - CONVULSION [None]
  - DYSPHEMIA [None]
  - GAIT DISTURBANCE [None]
  - INSOMNIA [None]
  - SPEECH DISORDER [None]
  - TREMOR [None]
